FAERS Safety Report 12669312 (Version 5)
Quarter: 2020Q2

REPORT INFORMATION
  Report Type: Spontaneous
  Country: US (occurrence: US)
  Receive Date: 20160819
  Receipt Date: 20200619
  Transmission Date: 20200713
  Serious: Yes (Hospitalization, Other)
  Sender: FDA-Public Use
  Company Number: US-PFIZER INC-2016388678

PATIENT
  Age: 62 Year
  Sex: Female
  Weight: 73 kg

DRUGS (16)
  1. IBRANCE [Suspect]
     Active Substance: PALBOCICLIB
     Dosage: 125 MG, CYCLIC (DAILY FOR 3 WEEKS THEN OFF 1 WEEK, TAKES FOR 21 DAYS)
  2. IBRANCE [Suspect]
     Active Substance: PALBOCICLIB
     Dosage: 125 MG, CYCLIC (DAILY ON DAYS 1-21 EVERY 28 DAYS)
     Route: 048
     Dates: start: 20170807
  3. ATIVAN [Concomitant]
     Active Substance: LORAZEPAM
     Indication: ANXIETY
     Dosage: UNK, AS NEEDED (1 MG, CAN TAKE UP TO 3 PILLS AS NEEDED-USUALLY ONLY TAKES 2)
     Dates: start: 2006
  4. METOPROLOL. [Concomitant]
     Active Substance: METOPROLOL
     Indication: HEART RATE ABNORMAL
     Dosage: 25 MG, 2X/DAY
     Route: 048
     Dates: start: 2007
  5. FLEXERIL [Concomitant]
     Active Substance: CYCLOBENZAPRINE HYDROCHLORIDE
     Indication: MUSCLE RELAXANT THERAPY
     Dosage: 10 MG, AS NEEDED
     Route: 048
  6. ELIQUIS [Concomitant]
     Active Substance: APIXABAN
     Indication: ANTICOAGULANT THERAPY
     Dosage: 2.5 MG, DAILY
     Route: 048
  7. AROMASIN [Concomitant]
     Active Substance: EXEMESTANE
     Indication: AROMATASE INHIBITION THERAPY
     Dosage: 25 MG, DAILY
     Route: 048
  8. IBRANCE [Suspect]
     Active Substance: PALBOCICLIB
     Dosage: 125 MG, CYCLIC (CAPSULE, ONCE A DAY FOR 21 DAYS AND OFF FOR 7)
     Route: 048
     Dates: start: 201510
  9. METOPROLOL. [Concomitant]
     Active Substance: METOPROLOL
     Indication: THROMBOSIS
  10. ELIQUIS [Concomitant]
     Active Substance: APIXABAN
     Indication: THROMBOSIS
     Dosage: 5 MG
  11. LORAZEPAM. [Concomitant]
     Active Substance: LORAZEPAM
     Dosage: BREAKS THIS TABLET IN HALF
  12. METOPROLOL. [Concomitant]
     Active Substance: METOPROLOL
     Indication: BLOOD PRESSURE ABNORMAL
  13. FLEXERIL [Concomitant]
     Active Substance: CYCLOBENZAPRINE HYDROCHLORIDE
     Indication: PAIN
     Dosage: 10 MG, ALLOWED UP TO 3 A DAY
  14. LETROZOLE. [Concomitant]
     Active Substance: LETROZOLE
     Indication: BREAST CANCER FEMALE
     Dosage: 2.5 MG, DAILY
     Dates: start: 201509
  15. IBRANCE [Suspect]
     Active Substance: PALBOCICLIB
     Indication: BREAST CANCER METASTATIC
     Dosage: 125 MG, CYCLIC (CAPSULE, ONCE A DAY FOR 21 DAYS AND OFF FOR 7)
     Route: 048
  16. LORAZEPAM. [Concomitant]
     Active Substance: LORAZEPAM
     Indication: ANXIETY
     Dosage: 0.5 MG, AS NEEDED
     Route: 048

REACTIONS (15)
  - Dizziness [Not Recovered/Not Resolved]
  - Pulmonary thrombosis [Unknown]
  - Abdominal discomfort [Unknown]
  - Vision blurred [Unknown]
  - Nail disorder [Unknown]
  - Lower limb fracture [Unknown]
  - Weight decreased [Not Recovered/Not Resolved]
  - Eating disorder [Not Recovered/Not Resolved]
  - Nausea [Unknown]
  - Femur fracture [Unknown]
  - Feeling abnormal [Not Recovered/Not Resolved]
  - Vertigo [Recovered/Resolved]
  - Arthralgia [Unknown]
  - Skin exfoliation [Unknown]
  - Thrombosis [Unknown]

NARRATIVE: CASE EVENT DATE: 2015
